FAERS Safety Report 8251641-5 (Version None)
Quarter: 2012Q2

REPORT INFORMATION
  Report Type: 
  Country: None (occurrence: None)
  Receive Date: 20120402
  Receipt Date: 20111227
  Transmission Date: 20120825
  Serious: No
  Sender: FDA-Public Use
  Company Number: US-ABBOTT-12P-163-0888412-00

PATIENT
  Age: 60 Year
  Sex: Male
  Weight: 87.168 kg

DRUGS (2)
  1. LEVOTHYROXINE SODIUM [Concomitant]
     Indication: HYPOTHYROIDISM
     Dosage: (GENERIC)
     Route: 048
  2. ANDROGEL [Suspect]
     Indication: BLOOD TESTOSTERONE DECREASED
     Route: 061
     Dates: start: 20110901

REACTIONS (3)
  - ASTHENIA [None]
  - ERECTILE DYSFUNCTION [None]
  - IRRITABILITY [None]
